FAERS Safety Report 9847207 (Version 1)
Quarter: 2014Q1

REPORT INFORMATION
  Report Type: Spontaneous
  Country: FR (occurrence: FR)
  Receive Date: 20140127
  Receipt Date: 20140127
  Transmission Date: 20141002
  Serious: Yes (Death, Other)
  Sender: FDA-Public Use
  Company Number: FR-PFIZER INC-2014020708

PATIENT
  Age: 59 Year
  Sex: Male

DRUGS (1)
  1. TAHOR [Suspect]
     Indication: PROPHYLAXIS
     Dosage: UNK
     Route: 048
     Dates: start: 200108, end: 200607

REACTIONS (3)
  - Death [Fatal]
  - Myalgia [Unknown]
  - Gait disturbance [Unknown]
